FAERS Safety Report 4337292-3 (Version None)
Quarter: 2004Q2

REPORT INFORMATION
  Report Type: 
  Country: None (occurrence: None)
  Receive Date: 20040408
  Receipt Date: 20040322
  Transmission Date: 20050107
  Serious: Yes (Life-Threatening, Hospitalization)
  Sender: FDA-Public Use
  Company Number: DSA_24025_2004

PATIENT
  Age: 59 Year
  Sex: Male

DRUGS (7)
  1. ENALAPRIL MALEATE [Suspect]
     Dosage: 5 MG PO
     Route: 048
     Dates: start: 20030401, end: 20040122
  2. COLCHICINE + OPIUM + TIEMONIUM METHYLSULFATE [Concomitant]
  3. OMEPRAZOLE [Concomitant]
  4. PRAVASTATIN SODIUM [Concomitant]
  5. BISOPROLOL [Concomitant]
  6. CLOPIDOGREL BISULFATE [Concomitant]
  7. HYPERICIN (HERBAL TEA) [Concomitant]

REACTIONS (6)
  - CIRCULATORY COLLAPSE [None]
  - DEHYDRATION [None]
  - GASTROENTERITIS [None]
  - HAEMODIALYSIS [None]
  - PNEUMONIA [None]
  - RENAL FAILURE ACUTE [None]
